FAERS Safety Report 16143921 (Version 1)
Quarter: 2019Q2

REPORT INFORMATION
  Report Type: Spontaneous
  Country: CN (occurrence: CN)
  Receive Date: 20190401
  Receipt Date: 20190401
  Transmission Date: 20190711
  Serious: Yes (Disabling)
  Sender: FDA-Public Use
  Company Number: CN-PFIZER INC-2019128835

PATIENT
  Age: 63 Year
  Sex: Male
  Weight: 70 kg

DRUGS (6)
  1. NAI XIN [ESOMEPRAZOLE MAGNESIUM] [Suspect]
     Active Substance: ESOMEPRAZOLE MAGNESIUM
     Indication: PULMONARY EMBOLISM
     Dosage: 20 MG, 1X/DAY
     Route: 048
     Dates: start: 20190108, end: 20190117
  2. PIPERACILLIN AND TAZOBACTAM [Suspect]
     Active Substance: PIPERACILLIN SODIUM\TAZOBACTAM SODIUM
     Indication: PNEUMONITIS
     Dosage: 4.5 G, 2X/DAY
     Route: 041
     Dates: start: 20190108, end: 20190110
  3. LIPITOR [Suspect]
     Active Substance: ATORVASTATIN CALCIUM
     Indication: HYPERLIPIDAEMIA
     Dosage: 20 MG, 1X/DAY
     Route: 048
     Dates: start: 20190108, end: 20190118
  4. NUO SEN [Suspect]
     Active Substance: PANTOPRAZOLE SODIUM
     Indication: PULMONARY EMBOLISM
     Dosage: 60 MG, 1X/DAY
     Route: 041
     Dates: start: 20190108, end: 20190114
  5. NAI XIN [ESOMEPRAZOLE MAGNESIUM] [Suspect]
     Active Substance: ESOMEPRAZOLE MAGNESIUM
     Indication: PROPHYLAXIS
  6. NUO SEN [Suspect]
     Active Substance: PANTOPRAZOLE SODIUM
     Indication: PROPHYLAXIS

REACTIONS (4)
  - Hepatic function abnormal [Recovering/Resolving]
  - Bilirubin conjugated increased [Recovering/Resolving]
  - Blood bilirubin unconjugated increased [Recovering/Resolving]
  - Blood bilirubin increased [Recovering/Resolving]

NARRATIVE: CASE EVENT DATE: 20190110
